FAERS Safety Report 24865014 (Version 1)
Quarter: 2025Q1

REPORT INFORMATION
  Report Type: Spontaneous
  Country: CN (occurrence: CN)
  Receive Date: 20250121
  Receipt Date: 20250121
  Transmission Date: 20250408
  Serious: Yes (Hospitalization, Other)
  Sender: AUROBINDO
  Company Number: CN-AUROBINDO-AUR-APL-2025-003264

PATIENT
  Age: 64 Year
  Sex: Male
  Weight: 63.9 kg

DRUGS (2)
  1. EVOMELA [Suspect]
     Active Substance: MELPHALAN HYDROCHLORIDE
     Indication: Non-Hodgkin^s lymphoma
     Route: 042
     Dates: start: 20241225, end: 20241225
  2. EVOMELA [Suspect]
     Active Substance: MELPHALAN HYDROCHLORIDE
     Route: 042
     Dates: start: 20241226, end: 20241226

REACTIONS (2)
  - Diarrhoea haemorrhagic [Unknown]
  - Diarrhoea [Unknown]

NARRATIVE: CASE EVENT DATE: 20241227
